FAERS Safety Report 15175740 (Version 20)
Quarter: 2019Q4

REPORT INFORMATION
  Report Type: Spontaneous
  Country: US (occurrence: US)
  Receive Date: 20180720
  Receipt Date: 20191205
  Transmission Date: 20200122
  Serious: Yes (Hospitalization)
  Sender: FDA-Public Use
  Company Number: US-ACTELION-A-US2018-170963

PATIENT
  Age: 82 Year
  Sex: Male
  Weight: 129.25 kg

DRUGS (10)
  1. ADEMPAS [Concomitant]
     Active Substance: RIOCIGUAT
     Dosage: 0.5 MG, UNK
  2. ADEMPAS [Concomitant]
     Active Substance: RIOCIGUAT
     Dosage: 1.5 MG, TID
     Dates: start: 20181130
  3. OXYGEN. [Concomitant]
     Active Substance: OXYGEN
  4. NITROFURANTOIN. [Concomitant]
     Active Substance: NITROFURANTOIN
  5. ALFUZOSIN [Concomitant]
     Active Substance: ALFUZOSIN
  6. OPSUMIT [Suspect]
     Active Substance: MACITENTAN
     Indication: PULMONARY ARTERIAL HYPERTENSION
     Dosage: 10 MG, QD
     Route: 048
     Dates: start: 20180323
  7. OPSUMIT [Suspect]
     Active Substance: MACITENTAN
     Dosage: 10 MG, QD
     Route: 048
  8. ADEMPAS [Concomitant]
     Active Substance: RIOCIGUAT
     Dosage: 1 MG, TID
  9. CARVEDILOL. [Concomitant]
     Active Substance: CARVEDILOL
  10. ELIQUIS [Concomitant]
     Active Substance: APIXABAN
     Dosage: 5 MG, BID
     Dates: start: 201712

REACTIONS (29)
  - Blood urine present [Unknown]
  - Weight increased [Unknown]
  - Bladder catheterisation [Recovered/Resolved]
  - Fall [Unknown]
  - Product dose omission [Unknown]
  - Urine odour abnormal [Unknown]
  - Dyspnoea [Unknown]
  - Catheter site discharge [Recovered/Resolved]
  - Haematuria [Unknown]
  - Urinary tract infection [Unknown]
  - Dizziness postural [Unknown]
  - Infection [Unknown]
  - Prostatomegaly [Unknown]
  - Transfusion [Unknown]
  - Dizziness [Unknown]
  - Fatigue [Unknown]
  - Gastrointestinal disorder [Unknown]
  - Haemorrhage [Unknown]
  - Blood pressure systolic [Recovering/Resolving]
  - Anaemia [Unknown]
  - Presyncope [Unknown]
  - Wound [Unknown]
  - Full blood count decreased [Unknown]
  - Device occlusion [Recovered/Resolved]
  - Flank pain [Unknown]
  - Therapy non-responder [Not Recovered/Not Resolved]
  - Oedema peripheral [Unknown]
  - Dyspnoea exertional [Unknown]
  - Skin abrasion [Recovering/Resolving]

NARRATIVE: CASE EVENT DATE: 20180626
